FAERS Safety Report 4845153-6 (Version None)
Quarter: 2005Q4

REPORT INFORMATION
  Report Type: 
  Country: None (occurrence: None)
  Receive Date: 20051205
  Receipt Date: 20051122
  Transmission Date: 20060501
  Serious: Yes (Death, Hospitalization)
  Sender: FDA-Public Use
  Company Number: GB-ROCHE-425728

PATIENT
  Age: 72 Year
  Sex: Male

DRUGS (4)
  1. CAPECITABINE [Suspect]
     Indication: COLORECTAL CANCER
     Dosage: DOSE REDUCED BY 25% AS PER PROTOCOL DOSE EQUATES TO 3000 MG PER DAY GIVEN ON DAYS 1 TO 14 EVERY THR+
     Route: 048
     Dates: start: 20051024, end: 20051028
  2. CAPECITABINE [Suspect]
     Route: 048
  3. OXALIPLATIN [Suspect]
     Dosage: GIVEN AS A 2 HOUR CONTINUOUS INFUSION
     Route: 042
  4. CETUXIMAB [Suspect]
     Dosage: INITIAL LOADING DOSE OF 400 MG/M2 FOLLOWED BY WEEKLY INFUSION OF 250 MG/M2
     Route: 042

REACTIONS (4)
  - DIARRHOEA [None]
  - GENERAL PHYSICAL HEALTH DETERIORATION [None]
  - NAUSEA [None]
  - VOMITING [None]
